FAERS Safety Report 12203145 (Version 1)
Quarter: 2016Q1

REPORT INFORMATION
  Report Type: Spontaneous
  Country: None (occurrence: None)
  Receive Date: 20160321
  Receipt Date: 20160321
  Transmission Date: 20160526
  Serious: Yes (Other)
  Sender: FDA-Public Use
  Company Number: None

PATIENT
  Age: 30 Year
  Sex: Male
  Weight: 79.38 kg

DRUGS (2)
  1. NICOTINE PATCHES [Concomitant]
  2. ZYBAN [Suspect]
     Active Substance: BUPROPION HYDROCHLORIDE
     Indication: SMOKING CESSATION THERAPY
     Route: 048
     Dates: start: 20160224, end: 20160319

REACTIONS (1)
  - Chest pain [None]

NARRATIVE: CASE EVENT DATE: 20160319
